FAERS Safety Report 14279383 (Version 3)
Quarter: 2018Q1

REPORT INFORMATION
  Report Type: Spontaneous
  Country: FR (occurrence: FR)
  Receive Date: 20171213
  Receipt Date: 20180109
  Transmission Date: 20180508
  Serious: Yes (Other)
  Sender: FDA-Public Use
  Company Number: FR-TEVA-2017-FR-829243

PATIENT
  Age: 8 Year
  Sex: Male

DRUGS (5)
  1. CYCLOPHOSPHAMIDE. [Suspect]
     Active Substance: CYCLOPHOSPHAMIDE
     Indication: ATYPICAL TERATOID/RHABDOID TUMOUR OF CNS
     Dates: start: 201604
  2. CYTARABINE. [Suspect]
     Active Substance: CYTARABINE
     Indication: ATYPICAL TERATOID/RHABDOID TUMOUR OF CNS
     Route: 037
     Dates: start: 201604
  3. ETOPOSIDE. [Suspect]
     Active Substance: ETOPOSIDE
     Indication: ATYPICAL TERATOID/RHABDOID TUMOUR OF CNS
     Dates: start: 201604
  4. BEVACIZUMAB. [Suspect]
     Active Substance: BEVACIZUMAB
     Indication: ATYPICAL TERATOID/RHABDOID TUMOUR OF CNS
     Route: 042
     Dates: start: 201604
  5. CELECOXIB. [Suspect]
     Active Substance: CELECOXIB
     Indication: ATYPICAL TERATOID/RHABDOID TUMOUR OF CNS
     Route: 048
     Dates: start: 201604

REACTIONS (6)
  - Injection site reaction [Recovered/Resolved]
  - Product use issue [Unknown]
  - Influenza [Unknown]
  - Asthenia [Unknown]
  - Product use in unapproved indication [Unknown]
  - Neutropenia [Recovered/Resolved]
